FAERS Safety Report 15649713 (Version 1)
Quarter: 2018Q4

REPORT INFORMATION
  Report Type: Report from Study
  Country: None (occurrence: US)
  Receive Date: 20181122
  Receipt Date: 20181122
  Transmission Date: 20190205
  Serious: Yes (Other)
  Sender: FDA-Public Use
  Company Number: US-ABBVIE-18S-163-2559834-00

PATIENT
  Age: 78 Year
  Sex: Female

DRUGS (1)
  1. CREON [Suspect]
     Active Substance: PANCRELIPASE AMYLASE\PANCRELIPASE LIPASE\PANCRELIPASE PROTEASE
     Indication: PRODUCT USED FOR UNKNOWN INDICATION
     Route: 048

REACTIONS (7)
  - Chest pain [Unknown]
  - Constipation [Unknown]
  - Deafness bilateral [Unknown]
  - Essential hypertension [Unknown]
  - Abdominal pain [Unknown]
  - Hyperthyroidism [Unknown]
  - Depression [Unknown]

NARRATIVE: CASE EVENT DATE: 20180813
